FAERS Safety Report 19136230 (Version 4)
Quarter: 2021Q4

REPORT INFORMATION
  Report Type: Report from Study
  Country: US (occurrence: US)
  Receive Date: 20210414
  Receipt Date: 20211220
  Transmission Date: 20220304
  Serious: Yes (Hospitalization)
  Sender: FDA-Public Use
  Company Number: US-SHIRE-US201942561AA

PATIENT
  Sex: Male

DRUGS (1)
  1. HUMAN IMMUNOGLOBULIN G [Suspect]
     Active Substance: HUMAN IMMUNOGLOBULIN G
     Indication: Primary immunodeficiency syndrome
     Route: 065

REACTIONS (7)
  - Wrist fracture [Unknown]
  - Fall [Unknown]
  - COVID-19 [Unknown]
  - Malaise [Unknown]
  - Infusion related reaction [Unknown]
  - Oropharyngeal pain [Unknown]
  - Back pain [Unknown]
